FAERS Safety Report 19548719 (Version 3)
Quarter: 2021Q3

REPORT INFORMATION
  Report Type: Spontaneous
  Country: HR (occurrence: HR)
  Receive Date: 20210714
  Receipt Date: 20210825
  Transmission Date: 20211014
  Serious: Yes (Hospitalization, Other)
  Sender: FDA-Public Use
  Company Number: HR-MACLEODS PHARMACEUTICALS US LTD-MAC2021031842

PATIENT

DRUGS (25)
  1. DICLOFENAC [Interacting]
     Active Substance: DICLOFENAC
     Dosage: 200 MILLIGRAM, QD, NON?MACLEOD PRODUCT
     Route: 048
  2. COTRIMOXAZOLE [Interacting]
     Active Substance: SULFAMETHOXAZOLE\TRIMETHOPRIM
     Indication: URINARY TRACT INFECTION
     Dosage: 480 MILLIGRAM, BID, NON?MACLEOD PRODUCT
     Route: 048
  3. CALCITRIOL. [Concomitant]
     Active Substance: CALCITRIOL
     Indication: PRODUCT USED FOR UNKNOWN INDICATION
     Dosage: 25 MICROGRAM, QOD
     Route: 048
  4. CEFUXOMINE [Concomitant]
     Indication: PNEUMONIA
     Dosage: 1500 MILLIGRAM, QID
     Route: 048
  5. ATORVASTATIN 20 MG [Interacting]
     Active Substance: ATORVASTATIN
     Indication: DYSLIPIDAEMIA
     Dosage: 20 MILLIGRAM, QD, NON?MACLEOD PRODUCT
     Route: 048
  6. PROPRANOLOL [Interacting]
     Active Substance: PROPRANOLOL HYDROCHLORIDE
     Dosage: 20 MILLIGRAM, TID, ON SECONE DISCHARGE, NON?MACLEOD PRODUCT
     Route: 048
  7. METHYLPREDNISOLONE. [Concomitant]
     Active Substance: METHYLPREDNISOLONE
     Indication: ACUTE KIDNEY INJURY
     Dosage: 250 MILLIGRAM, QD, PULSE THERAPY
     Route: 042
  8. FUROSEMIDE. [Interacting]
     Active Substance: FUROSEMIDE
     Indication: PRODUCT USED FOR UNKNOWN INDICATION
     Dosage: 40 MILLIGRAM, QD, NON?MACLEOD PRODUCT
     Route: 048
  9. FUROSEMIDE. [Interacting]
     Active Substance: FUROSEMIDE
     Dosage: 40 MILLIGRAM, QD, ON DISCHARGED, NON?MACLEOD PRODUCT
     Route: 065
  10. CALCITRIOL. [Concomitant]
     Active Substance: CALCITRIOL
     Dosage: 25 MICROGRAM, QOD, ON DISCHARGE
     Route: 048
  11. METHYLPREDNISOLONE. [Concomitant]
     Active Substance: METHYLPREDNISOLONE
     Dosage: UNK UNK, QD
     Route: 048
  12. PANTOPRAZOLE 40 MG [Suspect]
     Active Substance: PANTOPRAZOLE SODIUM
     Indication: PRODUCT USED FOR UNKNOWN INDICATION
     Dosage: 40 MILLIGRAM, QD, NON?MACLEOD PRODUCT
     Route: 048
  13. CEFTRIAXONE. [Interacting]
     Active Substance: CEFTRIAXONE
     Indication: URINARY TRACT INFECTION
     Dosage: UNK, NON?MACLEOD PRODUCT
     Route: 048
  14. CEFUXOMINE [Concomitant]
     Indication: URINARY TRACT INFECTION
  15. CEFTRIAXONE. [Interacting]
     Active Substance: CEFTRIAXONE
     Indication: PNEUMONIA
     Dosage: 1 GRAM, QD, NON?MACLEOD PRODUCT
     Route: 042
  16. METHYLPREDNISOLONE. [Concomitant]
     Active Substance: METHYLPREDNISOLONE
     Dosage: 40 MILLIGRAM, QD
     Route: 065
  17. PROPRANOLOL [Interacting]
     Active Substance: PROPRANOLOL HYDROCHLORIDE
     Dosage: 20 MILLIGRAM, TID, ON DAY 21, AT DISCHARGE, NON?MACLEOD PRODUCT
     Route: 048
  18. CALCIUM CARBONATE. [Concomitant]
     Active Substance: CALCIUM CARBONATE
     Dosage: 1 GRAM, TID, ON DISCHARGE
     Route: 048
  19. POTASSIUM CITRATE/POTASSIUM HYDROGEN CARBONATE [Concomitant]
     Indication: HYPOKALAEMIA
     Dosage: 2 GRAM, QD, ON DISCHARGE
     Route: 065
  20. DICLOFENAC [Interacting]
     Active Substance: DICLOFENAC
     Indication: MIGRAINE
     Dosage: UNK, NON?MACLEOD PRODUCT
     Route: 048
  21. DICLOFENAC [Interacting]
     Active Substance: DICLOFENAC
     Dosage: 150 MILLIGRAM, QD, NON?MACLEOD PRODUCT
     Route: 048
  22. PANTOPRAZOLE 40 MG [Interacting]
     Active Substance: PANTOPRAZOLE SODIUM
     Dosage: 40 MILLIGRAM, QD, ON DISCHARGED, NON?MACLEOD PRODUCT
     Route: 065
  23. PROPRANOLOL [Interacting]
     Active Substance: PROPRANOLOL HYDROCHLORIDE
     Indication: MIGRAINE
     Dosage: 20 MILLIGRAM, TID, NON?MACLEOD PRODUCT
     Route: 065
  24. PREDNISONE. [Interacting]
     Active Substance: PREDNISONE
     Indication: PRODUCT USED FOR UNKNOWN INDICATION
     Dosage: 60 MILLIGRAM, QD, NON?MACLEOD PRODUCT
     Route: 048
  25. CALCIUM CARBONATE. [Concomitant]
     Active Substance: CALCIUM CARBONATE
     Indication: HYPOCALCAEMIA
     Dosage: 1 GRAM, TID
     Route: 048

REACTIONS (12)
  - Enterococcal infection [Recovered/Resolved]
  - Acute kidney injury [Recovered/Resolved]
  - Ascites [Recovered/Resolved]
  - Migraine [Recovered/Resolved]
  - Dyslipidaemia [Not Recovered/Not Resolved]
  - Blood alkaline phosphatase increased [Recovered/Resolved]
  - Drug interaction [Recovered/Resolved]
  - Nephrotic syndrome [Recovered/Resolved]
  - Nephropathy toxic [Recovered/Resolved]
  - Drug-induced liver injury [Recovered/Resolved]
  - Pneumonia [Recovered/Resolved]
  - Urinary tract infection [Recovered/Resolved]
